FAERS Safety Report 25030312 (Version 1)
Quarter: 2025Q1

REPORT INFORMATION
  Report Type: Spontaneous
  Country: FR (occurrence: FR)
  Receive Date: 20250303
  Receipt Date: 20250303
  Transmission Date: 20250408
  Serious: Yes (Hospitalization)
  Sender: ORGANON
  Company Number: None

PATIENT
  Age: 18 Year
  Sex: Female
  Weight: 90 kg

DRUGS (8)
  1. ORGALUTRAN [Suspect]
     Active Substance: GANIRELIX ACETATE
     Indication: In vitro fertilisation
     Route: 058
     Dates: start: 20250122, end: 20250126
  2. FOLLITROPIN\LUTEINIZING HORMONE [Suspect]
     Active Substance: FOLLITROPIN\LUTEINIZING HORMONE
     Indication: In vitro fertilisation
     Dosage: 150 INTERNATIONAL UNIT, QD
     Route: 058
     Dates: start: 20250117, end: 20250122
  3. FOLLITROPIN\LUTEINIZING HORMONE [Suspect]
     Active Substance: FOLLITROPIN\LUTEINIZING HORMONE
     Dosage: 112.5 INTERNATIONAL UNIT, QD
     Route: 058
     Dates: start: 20250123, end: 20250127
  4. GONADORELIN [Suspect]
     Active Substance: GONADORELIN
     Indication: In vitro fertilisation
     Route: 058
     Dates: start: 20250127, end: 20250127
  5. ETHINYL ESTRADIOL\LEVONORGESTREL [Concomitant]
     Active Substance: ETHINYL ESTRADIOL\LEVONORGESTREL
     Indication: In vitro fertilisation
     Route: 048
     Dates: start: 20241222, end: 20250112
  6. ALFENTANIL [Concomitant]
     Active Substance: ALFENTANIL
     Indication: Oocyte harvest
     Route: 042
     Dates: start: 20250129, end: 20250129
  7. PROPOFOL [Concomitant]
     Active Substance: PROPOFOL
     Indication: Oocyte harvest
     Route: 042
     Dates: start: 20250129, end: 20250129
  8. NEFOPAM HYDROCHLORIDE [Concomitant]
     Active Substance: NEFOPAM HYDROCHLORIDE
     Indication: Oocyte harvest
     Route: 042
     Dates: start: 20250129, end: 20250129

REACTIONS (1)
  - Idiopathic intracranial hypertension [Recovering/Resolving]

NARRATIVE: CASE EVENT DATE: 20250201
